FAERS Safety Report 4601672-9 (Version None)
Quarter: 2005Q1

REPORT INFORMATION
  Report Type: 
  Country: None (occurrence: None)
  Receive Date: 20050308
  Receipt Date: 20050215
  Transmission Date: 20050727
  Serious: Yes (Death)
  Sender: FDA-Public Use
  Company Number: US-BRISTOL-MYERS SQUIBB COMPANY-12864880

PATIENT
  Sex: Male

DRUGS (1)
  1. CYTOXAN [Suspect]
     Dosage: PT DID NOT RECEIVE DRUG

REACTIONS (2)
  - DEATH [None]
  - NO ADVERSE DRUG EFFECT [None]
